FAERS Safety Report 19247205 (Version 1)
Quarter: 2021Q2

REPORT INFORMATION
  Report Type: Report from Study
  Country: US (occurrence: US)
  Receive Date: 20210512
  Receipt Date: 20210512
  Transmission Date: 20210717
  Serious: No
  Sender: FDA-Public Use
  Company Number: US-B.I. PHARMACEUTICALS,INC./RIDGEFIELD-2021-BI-084006

PATIENT
  Age: 80 Year
  Sex: Male

DRUGS (2)
  1. OFEV [Suspect]
     Active Substance: NINTEDANIB
     Indication: IDIOPATHIC PULMONARY FIBROSIS
     Dosage: 100 MG BY MOUTH TWICE DAILY
     Route: 048
     Dates: start: 2018
  2. OFEV [Suspect]
     Active Substance: NINTEDANIB
     Dosage: 100MG BID

REACTIONS (5)
  - Diarrhoea [Not Recovered/Not Resolved]
  - Abdominal distension [Recovered/Resolved]
  - Diarrhoea [Not Recovered/Not Resolved]
  - Flatulence [Recovered/Resolved]
  - Weight decreased [Not Recovered/Not Resolved]

NARRATIVE: CASE EVENT DATE: 202102
